FAERS Safety Report 25989797 (Version 1)
Quarter: 2025Q4

REPORT INFORMATION
  Report Type: Report from Study
  Country: TR (occurrence: TR)
  Receive Date: 20251103
  Receipt Date: 20251103
  Transmission Date: 20260117
  Serious: Yes (Other)
  Sender: ROCHE
  Company Number: TR-ROCHE-10000420004

PATIENT

DRUGS (1)
  1. RITUXIMAB [Suspect]
     Active Substance: RITUXIMAB
     Indication: B-cell lymphoma
     Route: 065

REACTIONS (7)
  - Neurotoxicity [Unknown]
  - Gastrointestinal toxicity [Unknown]
  - Neutropenia [Unknown]
  - Anaemia [Unknown]
  - Febrile neutropenia [Unknown]
  - Thrombocytopenia [Unknown]
  - Hyponatraemia [Unknown]
